FAERS Safety Report 21592439 (Version 1)
Quarter: 2022Q4

REPORT INFORMATION
  Report Type: Spontaneous
  Country: CN (occurrence: CN)
  Receive Date: 20221114
  Receipt Date: 20221114
  Transmission Date: 20230113
  Serious: Yes (Hospitalization)
  Sender: FDA-Public Use
  Company Number: CN-MYLANLABS-2022M1124370

PATIENT
  Age: 44 Year
  Sex: Male
  Weight: 86 kg

DRUGS (3)
  1. CELEBREX [Suspect]
     Active Substance: CELECOXIB
     Indication: Gouty arthritis
     Dosage: 0.2 GRAM, QD
     Route: 048
     Dates: start: 20220907, end: 20220919
  2. COLCHICINE [Concomitant]
     Active Substance: COLCHICINE
     Indication: Gouty arthritis
     Dosage: 0.5 MILLIGRAM, TID
     Route: 048
     Dates: start: 20220913, end: 20220925
  3. FEBUXOSTAT [Concomitant]
     Active Substance: FEBUXOSTAT
     Indication: Gouty arthritis
     Dosage: 40 MILLIGRAM, QD
     Route: 048
     Dates: start: 20220913, end: 20221008

REACTIONS (1)
  - Upper gastrointestinal haemorrhage [Recovering/Resolving]

NARRATIVE: CASE EVENT DATE: 20221009
